FAERS Safety Report 5961072-6 (Version None)
Quarter: 2008Q4

REPORT INFORMATION
  Report Type: 
  Country: None (occurrence: None)
  Receive Date: 20081119
  Receipt Date: 20081110
  Transmission Date: 20090506
  Serious: Yes (Death, Life-Threatening, Other)
  Sender: FDA-Public Use
  Company Number: 2007-00510

PATIENT
  Age: 61 Year
  Sex: Female

DRUGS (12)
  1. VELCADE [Suspect]
     Indication: MULTIPLE MYELOMA
     Dosage: 1.80 MG UNK INTRAVENOUS
     Route: 042
     Dates: start: 20061211, end: 20070323
  2. DEXAMETHASONE TAB [Suspect]
     Indication: MULTIPLE MYELOMA
     Dosage: 20.00 MG UNK INTRAVENOUS
     Route: 042
     Dates: start: 20070105, end: 20070324
  3. PREDNISOLONE [Suspect]
     Indication: BRONCHITIS
     Dosage: 10 MG UNK INTRAVENOUS
     Route: 042
     Dates: start: 20070104
  4. ALENDRONATE SODIUM [Concomitant]
  5. ALLOPURINOL [Concomitant]
  6. SELBEX (TEPRENONE) [Concomitant]
  7. NIZATIDINE [Concomitant]
  8. MAGNESIUM OXIDE (MAGNESIUM OXIDE) [Concomitant]
  9. ZOMETA [Concomitant]
  10. LASIX [Concomitant]
  11. PENTAZOCINE LACTATE [Concomitant]
  12. PLATELETE, HUMAN BLOOD (PLATELETS, HUMAN BLOOD) [Concomitant]

REACTIONS (14)
  - ANAEMIA [None]
  - C-REACTIVE PROTEIN INCREASED [None]
  - DEEP VEIN THROMBOSIS [None]
  - HAEMOGLOBIN DECREASED [None]
  - HYPERAMYLASAEMIA [None]
  - HYPERCALCAEMIA [None]
  - HYPERGLYCAEMIA [None]
  - HYPERKALAEMIA [None]
  - HYPERURICAEMIA [None]
  - LYMPHOPENIA [None]
  - MALIGNANT NEOPLASM PROGRESSION [None]
  - PLATELET COUNT DECREASED [None]
  - PULMONARY INFARCTION [None]
  - RESPIRATORY FAILURE [None]
